FAERS Safety Report 6719586-7 (Version None)
Quarter: 2010Q2

REPORT INFORMATION
  Report Type: 
  Country: None (occurrence: None)
  Receive Date: 20100510
  Receipt Date: 20100510
  Transmission Date: 20101027
  Serious: Yes (Other)
  Sender: FDA-Public Use
  Company Number: None

PATIENT
  Age: 23 Year
  Sex: Male
  Weight: 72.5755 kg

DRUGS (1)
  1. PENICILLIN VK [Suspect]
     Indication: TOOTH ABSCESS
     Dosage: 1 EVERY 6 HOURS
     Dates: start: 20100502, end: 20100508

REACTIONS (3)
  - ABDOMINAL DISCOMFORT [None]
  - DYSPNOEA [None]
  - VOMITING [None]
